FAERS Safety Report 6137151-X (Version None)
Quarter: 2009Q1

REPORT INFORMATION
  Report Type: 
  Country: None (occurrence: None)
  Receive Date: 20090326
  Receipt Date: 20090311
  Transmission Date: 20090719
  Serious: No
  Sender: FDA-Public Use
  Company Number: US019131

PATIENT
  Age: 49 Year
  Sex: Female
  Weight: 68 kg

DRUGS (5)
  1. FENTORA [Suspect]
     Indication: BACK PAIN
     Dosage: UP TO FOUR TABLETS QD PRN
     Dates: start: 20061215
  2. FENTORA [Suspect]
     Indication: FIBROMYALGIA
     Dosage: UP TO FOUR TABLETS QD PRN
     Dates: start: 20061215
  3. FENTORA [Suspect]
     Indication: NECK PAIN
     Dosage: UP TO FOUR TABLETS QD PRN
     Dates: start: 20061215
  4. FENTANYL CITRATE (FENTANYL CITRATE) (800 MICROGRAM, LOZENGE) [Concomitant]
     Indication: FIBROMYALGIA
  5. MS CONTIN [Concomitant]

REACTIONS (40)
  - ABDOMINAL PAIN [None]
  - ANXIETY [None]
  - ARTHRALGIA [None]
  - BACK PAIN [None]
  - BLOOD BLISTER [None]
  - CHILLS [None]
  - COLD SWEAT [None]
  - CONFUSIONAL STATE [None]
  - CONSTIPATION [None]
  - DEPRESSION [None]
  - DIARRHOEA [None]
  - DISORIENTATION [None]
  - DIZZINESS [None]
  - DRUG PRESCRIBING ERROR [None]
  - DRY MOUTH [None]
  - FALL [None]
  - FATIGUE [None]
  - FORMICATION [None]
  - GASTROOESOPHAGEAL REFLUX DISEASE [None]
  - GINGIVAL PAIN [None]
  - GINGIVAL RECESSION [None]
  - HEADACHE [None]
  - HOT FLUSH [None]
  - INSOMNIA [None]
  - IRRITABILITY [None]
  - MUSCLE SPASMS [None]
  - NAUSEA [None]
  - NERVOUSNESS [None]
  - NIGHT SWEATS [None]
  - OEDEMA [None]
  - OROPHARYNGEAL BLISTERING [None]
  - PILOERECTION [None]
  - PRURITUS [None]
  - RASH [None]
  - RHINORRHOEA [None]
  - SKIN EXFOLIATION [None]
  - TREMOR [None]
  - VOMITING [None]
  - WEIGHT INCREASED [None]
  - WITHDRAWAL SYNDROME [None]
